APPROVED DRUG PRODUCT: ZIPRASIDONE MESYLATE
Active Ingredient: ZIPRASIDONE MESYLATE
Strength: EQ 20MG BASE/VIAL
Dosage Form/Route: POWDER;INTRAMUSCULAR
Application: A217595 | Product #001 | TE Code: AP
Applicant: STERISCIENCE PTE LTD
Approved: Sep 3, 2025 | RLD: No | RS: No | Type: RX